FAERS Safety Report 13239276 (Version 1)
Quarter: 2017Q1

REPORT INFORMATION
  Report Type: Other
  Country: DE (occurrence: DE)
  Receive Date: 20170216
  Receipt Date: 20170216
  Transmission Date: 20170428
  Serious: Yes (Hospitalization)
  Sender: FDA-Public Use
  Company Number: DE-HIKMA PHARMACEUTICALS CO. LTD-2017DE001710

PATIENT

DRUGS (1)
  1. INFLIXIMAB HOSPIRA [Suspect]
     Active Substance: INFLIXIMAB
     Indication: PRODUCT USED FOR UNKNOWN INDICATION
     Dosage: 300 MG,  EVERY 6 WEEKS
     Route: 065
     Dates: start: 20150917

REACTIONS (1)
  - Diverticulum [Recovered/Resolved]

NARRATIVE: CASE EVENT DATE: 20160101
